FAERS Safety Report 12850039 (Version 1)
Quarter: 2016Q4

REPORT INFORMATION
  Report Type: Spontaneous
  Country: DE (occurrence: DE)
  Receive Date: 20161014
  Receipt Date: 20161014
  Transmission Date: 20170207
  Serious: Yes (Other)
  Sender: FDA-Public Use
  Company Number: DE-TEVA-701183GER

PATIENT
  Age: 58 Year
  Sex: Female

DRUGS (3)
  1. COPAXONE [Suspect]
     Active Substance: GLATIRAMER ACETATE
     Dosage: 20 MILLIGRAM DAILY;
     Dates: start: 201301
  2. ESTRADIOL. [Concomitant]
     Active Substance: ESTRADIOL
  3. PROGESTERON [Concomitant]
     Active Substance: PROGESTERONE

REACTIONS (4)
  - Hepatic fibrosis [Not Recovered/Not Resolved]
  - Hepatitis [Not Recovered/Not Resolved]
  - Hepatic cirrhosis [Unknown]
  - Autoimmune hepatitis [Unknown]
